FAERS Safety Report 6956153-4 (Version None)
Quarter: 2010Q3

REPORT INFORMATION
  Report Type: 
  Country: None (occurrence: None)
  Receive Date: 20100830
  Receipt Date: 20100816
  Transmission Date: 20110219
  Serious: Yes (Other)
  Sender: FDA-Public Use
  Company Number: PHHY2010TW54239

PATIENT
  Age: 15 Year
  Sex: Male

DRUGS (3)
  1. METHYLPHENIDATE [Suspect]
     Indication: ATTENTION DEFICIT/HYPERACTIVITY DISORDER
  2. SERTRALINE HYDROCHLORIDE [Suspect]
     Indication: AGGRESSION
     Dosage: 50 MG, QD
  3. SERTRALINE HYDROCHLORIDE [Suspect]
     Indication: REPETITIVE SPEECH

REACTIONS (4)
  - INSOMNIA [None]
  - IRRITABILITY [None]
  - LOGORRHOEA [None]
  - MANIA [None]
